FAERS Safety Report 4612521-7 (Version None)
Quarter: 2005Q1

REPORT INFORMATION
  Report Type: 
  Country: None (occurrence: None)
  Receive Date: 20050316
  Receipt Date: 20050316
  Transmission Date: 20050727
  Serious: Yes (Other)
  Sender: FDA-Public Use
  Company Number: None

PATIENT
  Age: 11 Year
  Sex: Male

DRUGS (4)
  1. CLARITIN [Suspect]
     Indication: HYPERSENSITIVITY
     Dosage: X 1 MONTH
  2. CLARINEX [Suspect]
     Indication: HYPERSENSITIVITY
     Dosage: PER PROTOCOL
  3. CEFZIL [Suspect]
     Indication: INFECTION
  4. ALBUTEROL [Suspect]
     Indication: HYPERSENSITIVITY

REACTIONS (4)
  - HYPERSENSITIVITY [None]
  - INFECTION [None]
  - PHARMACEUTICAL PRODUCT COMPLAINT [None]
  - VOMITING [None]
